FAERS Safety Report 24867458 (Version 1)
Quarter: 2025Q1

REPORT INFORMATION
  Report Type: Spontaneous
  Country: US (occurrence: None)
  Receive Date: 20250118
  Receipt Date: 20250118
  Transmission Date: 20250409
  Serious: Yes (Hospitalization)
  Sender: FDA-CTU
  Company Number: None

PATIENT
  Sex: Female
  Weight: 80.4 kg

DRUGS (2)
  1. CISPLATIN [Suspect]
     Active Substance: CISPLATIN
  2. ALIMTA [Suspect]
     Active Substance: PEMETREXED DISODIUM

REACTIONS (4)
  - Non-cardiac chest pain [None]
  - Nausea [None]
  - Vomiting [None]
  - Bone pain [None]

NARRATIVE: CASE EVENT DATE: 20250110
